FAERS Safety Report 9391883 (Version 1)
Quarter: 2013Q3

REPORT INFORMATION
  Report Type: Spontaneous
  Country: US (occurrence: US)
  Receive Date: 20130709
  Receipt Date: 20130709
  Transmission Date: 20140515
  Serious: Yes (Hospitalization)
  Sender: FDA-Public Use
  Company Number: US-PERRIGO-13US006960

PATIENT
  Age: 55 Year
  Sex: Female

DRUGS (2)
  1. LORAZEPAM CONCENTRATE RX 2 MG/ML 1J9 [Suspect]
     Indication: SUBSTANCE USE
     Dosage: UNK, UNK
     Route: 065
  2. GABAPENTIN [Suspect]
     Indication: SUBSTANCE USE
     Dosage: UNK, UNK
     Route: 065

REACTIONS (4)
  - Coma [Unknown]
  - Somnolence [Unknown]
  - Tremor [Unknown]
  - Hyperreflexia [Unknown]
